FAERS Safety Report 18247579 (Version 1)
Quarter: 2020Q3

REPORT INFORMATION
  Report Type: Spontaneous
  Country: US (occurrence: US)
  Receive Date: 20200909
  Receipt Date: 20200909
  Transmission Date: 20201103
  Serious: Yes (Other)
  Sender: FDA-Public Use
  Company Number: US-AMERICAN REGENT INC-2019002779

PATIENT
  Age: 54 Year
  Sex: Male

DRUGS (2)
  1. INJECTAFER [Suspect]
     Active Substance: FERRIC CARBOXYMALTOSE
     Dosage: UNK
     Route: 065
     Dates: start: 201908, end: 201908
  2. INJECTAFER [Suspect]
     Active Substance: FERRIC CARBOXYMALTOSE
     Indication: IRON DEFICIENCY ANAEMIA
     Dosage: UNK
     Route: 065
     Dates: start: 2018, end: 2018

REACTIONS (1)
  - Hypophosphataemia [Recovering/Resolving]

NARRATIVE: CASE EVENT DATE: 201910
